FAERS Safety Report 4475219-4 (Version None)
Quarter: 2004Q4

REPORT INFORMATION
  Report Type: 
  Country: None (occurrence: None)
  Receive Date: 20041012
  Receipt Date: 20040930
  Transmission Date: 20050328
  Serious: Yes (Hospitalization)
  Sender: FDA-Public Use
  Company Number: ZONI002020

PATIENT
  Age: 47 Year
  Sex: Female

DRUGS (6)
  1. EXCEGRAN (ZONISAMIDE) [Suspect]
     Indication: EPILEPSY
     Dosage: 100 MG, 1 IN 1 D, ORAL
     Route: 048
     Dates: start: 20040726, end: 20040817
  2. VALPROATE SODIUM [Suspect]
     Indication: EPILEPSY
     Dosage: 1600 MG, 2 IN 1 D, ORAL
     Route: 048
     Dates: start: 20040722, end: 20040817
  3. PLETAL [Concomitant]
  4. MARZULENE  S (MARZULENE S) [Concomitant]
  5. SELBEX (TEPRENONE) [Concomitant]
  6. PHENYTOIN [Concomitant]

REACTIONS (2)
  - PARTIAL SEIZURES [None]
  - STEVENS-JOHNSON SYNDROME [None]
